FAERS Safety Report 7509246-7 (Version None)
Quarter: 2011Q2

REPORT INFORMATION
  Report Type: 
  Country: None (occurrence: None)
  Receive Date: 20110527
  Receipt Date: 20110526
  Transmission Date: 20111010
  Serious: Yes (Death)
  Sender: FDA-Public Use
  Company Number: TN-ROCHE-730707

PATIENT
  Sex: Male
  Weight: 66 kg

DRUGS (2)
  1. RIBAVIRIN [Suspect]
     Dosage: DRUG NAME: RIBAVIRINE
     Route: 048
     Dates: start: 20090518, end: 20090601
  2. PEGINTERFERON ALFA-2A [Suspect]
     Route: 058
     Dates: start: 20090518, end: 20090601

REACTIONS (1)
  - SEPTIC SHOCK [None]
